FAERS Safety Report 8822038 (Version 3)
Quarter: 2014Q1

REPORT INFORMATION
  Report Type: Spontaneous
  Country: US (occurrence: US)
  Receive Date: 20121003
  Receipt Date: 20140130
  Transmission Date: 20141002
  Serious: Yes (Hospitalization, Other)
  Sender: FDA-Public Use
  Company Number: US-009507513-1201USA01084

PATIENT
  Sex: Female
  Weight: 68.39 kg

DRUGS (12)
  1. FOSAMAX [Suspect]
     Indication: OSTEOPOROSIS
     Dosage: 70 MG, UNK
     Route: 048
     Dates: start: 2002, end: 20061223
  2. FOSAMAX [Suspect]
     Indication: OSTEOPOROSIS
     Dosage: 70 MG, UNK
     Route: 048
     Dates: start: 20100616, end: 20101207
  3. MK-9278 [Concomitant]
     Dates: start: 1997
  4. FERREX [Concomitant]
     Dates: start: 2001
  5. PROCARDIA [Concomitant]
     Dates: start: 1981
  6. ZOCOR [Concomitant]
     Route: 048
     Dates: start: 1981
  7. TOPROL XL TABLETS [Concomitant]
     Dates: start: 1981
  8. PEPCID [Concomitant]
     Route: 048
     Dates: start: 1981
  9. MK-9355 [Concomitant]
     Indication: GOUT
     Dates: start: 1980
  10. SPIRIVA [Concomitant]
     Dates: start: 2007
  11. FOSAMAX [Suspect]
     Indication: OSTEOPOROSIS
     Dosage: 70 MG, UNK
     Route: 048
     Dates: start: 20080307, end: 20100616
  12. FORTEO [Suspect]

REACTIONS (56)
  - Femoral neck fracture [Unknown]
  - Knee arthroplasty [Unknown]
  - Fall [Unknown]
  - Pelvic fracture [Unknown]
  - Renal failure chronic [Unknown]
  - Femur fracture [Recovered/Resolved]
  - Surgery [Unknown]
  - Pubis fracture [Recovering/Resolving]
  - Open reduction of fracture [Unknown]
  - Spinal osteoarthritis [Unknown]
  - Deafness unilateral [Unknown]
  - Intervertebral disc protrusion [Unknown]
  - Cholecystectomy [Unknown]
  - Spinal column stenosis [Unknown]
  - Pancreatitis [Unknown]
  - Cholecystitis acute [Unknown]
  - Hip arthroplasty [Unknown]
  - Impaired gastric emptying [Unknown]
  - Renal failure [Not Recovered/Not Resolved]
  - Diabetes mellitus [Unknown]
  - Spinal osteoarthritis [Unknown]
  - Back pain [Unknown]
  - Hypersensitivity [Unknown]
  - Blood pressure increased [Unknown]
  - Nerve compression [Unknown]
  - Arthritis [Unknown]
  - Acoustic neuroma [Unknown]
  - Arthritis [Unknown]
  - Knee deformity [Unknown]
  - Iliotibial band syndrome [Unknown]
  - Proteinuria [Unknown]
  - Incorrect dose administered [Unknown]
  - Osteopenia [Unknown]
  - Blood cholesterol increased [Unknown]
  - Lipids increased [Unknown]
  - Anaemia [Unknown]
  - Diverticulum [Unknown]
  - Delirium [Recovered/Resolved]
  - Chronic obstructive pulmonary disease [Unknown]
  - Insomnia [Unknown]
  - Paranoia [Recovered/Resolved]
  - Amnesia [Unknown]
  - Monoclonal gammopathy [Unknown]
  - Oedema [Unknown]
  - Blood triglycerides increased [Unknown]
  - Lethargy [Unknown]
  - Biopsy intestine abnormal [Unknown]
  - Urinary tract infection [Unknown]
  - Hyperlipidaemia [Unknown]
  - Balance disorder [Unknown]
  - Nodule [Unknown]
  - Sensory disturbance [Unknown]
  - Spinal osteoarthritis [Unknown]
  - Back pain [Unknown]
  - Constipation [Unknown]
  - Gastrooesophageal reflux disease [Unknown]
